FAERS Safety Report 9052822 (Version 1)
Quarter: 2013Q1

REPORT INFORMATION
  Report Type: Spontaneous
  Country: US (occurrence: US)
  Receive Date: 20130207
  Receipt Date: 20130207
  Transmission Date: 20140127
  Serious: Yes (Hospitalization)
  Sender: FDA-Public Use
  Company Number: US-ASTRAZENECA-2013SE07689

PATIENT
  Age: 16245 Day
  Sex: Male
  Weight: 74.8 kg

DRUGS (2)
  1. CRESTOR [Suspect]
     Indication: HYPERCHOLESTEROLAEMIA
     Route: 048
     Dates: start: 20100107
  2. DILTIAZEM [Concomitant]
     Indication: HYPERTENSION
     Dosage: 120 DAILY
     Route: 048

REACTIONS (1)
  - Chest pain [Recovering/Resolving]
